FAERS Safety Report 10167632 (Version 2)
Quarter: 2014Q2

REPORT INFORMATION
  Report Type: Spontaneous
  Country: US (occurrence: None)
  Receive Date: 20140508
  Receipt Date: 20140528
  Transmission Date: 20141212
  Serious: Yes (Hospitalization)
  Sender: FDA-Public Use
  Company Number: UTC-048073

PATIENT
  Age: 41 Year
  Sex: Female
  Weight: 73.2 kg

DRUGS (4)
  1. TYVASO [Suspect]
     Indication: COR PULMONALE CHRONIC
     Dosage: 4 IN 1 D
     Route: 055
     Dates: start: 20140103
  2. TRACLEER /01587701/  (BOSENTAN) [Concomitant]
  3. COUMADIN (WARFARIN SODIUM) UNKNOWN [Concomitant]
  4. SILDENAFIL (SILDENAFIL) [Concomitant]

REACTIONS (2)
  - Multiple allergies [None]
  - Bronchitis [None]
